FAERS Safety Report 21283486 (Version 1)
Quarter: 2022Q3

REPORT INFORMATION
  Report Type: Spontaneous
  Country: CN (occurrence: CN)
  Receive Date: 20220901
  Receipt Date: 20220901
  Transmission Date: 20221027
  Serious: Yes (Other)
  Sender: FDA-Public Use
  Company Number: CN-009507513-2208CHN011153

PATIENT
  Age: 40 Year
  Sex: Female
  Weight: 55 kg

DRUGS (1)
  1. CILASTATIN SODIUM\IMIPENEM [Suspect]
     Active Substance: CILASTATIN SODIUM\IMIPENEM
     Indication: Pyrexia
     Dosage: 500 MG, TWICE IN 1 DAY
     Route: 041
     Dates: start: 20220716, end: 20220716

REACTIONS (2)
  - Asphyxia [Recovered/Resolved]
  - Product use in unapproved indication [Unknown]

NARRATIVE: CASE EVENT DATE: 20220716
